FAERS Safety Report 7203620-4 (Version None)
Quarter: 2010Q4

REPORT INFORMATION
  Report Type: 
  Country: None (occurrence: None)
  Receive Date: 20101230
  Receipt Date: 20101221
  Transmission Date: 20110411
  Serious: Yes (Death, Other)
  Sender: FDA-Public Use
  Company Number: US-PFIZER INC-2010138682

PATIENT
  Sex: Female

DRUGS (6)
  1. REVATIO [Suspect]
     Indication: PULMONARY HYPERTENSION
     Dosage: 20 MG, 3X/DAY
     Dates: start: 20091006
  2. ASCORBIC ACID [Concomitant]
     Dosage: 500 MG, 2 X DAILY
  3. LEVOTHYROXINE [Concomitant]
     Dosage: 75 MCG, DAILY
  4. CENTRUM SILVER [Concomitant]
  5. OMEPRAZOLE [Concomitant]
     Dosage: 40MG
  6. ALENDRONATE SODIUM [Concomitant]
     Dosage: 70MG, WEEKLY

REACTIONS (3)
  - DEATH [None]
  - DRUG INEFFECTIVE [None]
  - PULMONARY HYPERTENSION [None]
